FAERS Safety Report 17796006 (Version 1)
Quarter: 2020Q2

REPORT INFORMATION
  Report Type: Spontaneous
  Country: TR (occurrence: TR)
  Receive Date: 20200516
  Receipt Date: 20200516
  Transmission Date: 20200714
  Serious: Yes (Hospitalization)
  Sender: FDA-Public Use
  Company Number: TR-VALIDUS PHARMACEUTICALS LLC-TR-2020VAL000415

PATIENT

DRUGS (9)
  1. CALCIUM [Suspect]
     Active Substance: CALCIUM
     Dosage: 4000 MG, UNK
     Route: 065
  2. CALCITRIOL. [Suspect]
     Active Substance: CALCITRIOL
     Dosage: 2 ?G, UNK
     Route: 065
  3. PHOSPHORUS [Concomitant]
     Active Substance: PHOSPHORUS
     Indication: HEREDITARY HYPOPHOSPHATAEMIC RICKETS
     Dosage: 1000 MG, UNK
     Route: 065
  4. CINACALCET. [Suspect]
     Active Substance: CINACALCET
     Indication: RICKETS
     Dosage: 0.25 MG/KG, UNK
     Route: 065
  5. CALCITRIOL. [Suspect]
     Active Substance: CALCITRIOL
     Indication: HEREDITARY HYPOPHOSPHATAEMIC RICKETS
     Dosage: 4 ?G, UNK
     Route: 065
  6. CALCIUM [Suspect]
     Active Substance: CALCIUM
     Dosage: 2000 MG, UNK
     Route: 065
  7. CALCITRIOL. [Suspect]
     Active Substance: CALCITRIOL
     Dosage: 6 ?G, UNK
     Route: 065
  8. CALCIUM [Suspect]
     Active Substance: CALCIUM
     Indication: HEREDITARY HYPOPHOSPHATAEMIC RICKETS
     Dosage: 4000 MG, UNK
     Route: 065
  9. CALCIUM [Suspect]
     Active Substance: CALCIUM
     Dosage: 150 MG/KG, UNK
     Route: 042

REACTIONS (1)
  - Hypocalcaemia [Recovering/Resolving]
